FAERS Safety Report 19257476 (Version 1)
Quarter: 2021Q2

REPORT INFORMATION
  Report Type: Spontaneous
  Country: US (occurrence: US)
  Receive Date: 20210513
  Receipt Date: 20210513
  Transmission Date: 20210717
  Serious: No
  Sender: FDA-Public Use
  Company Number: US-CELGENEUS-USA-20210500237

PATIENT
  Age: 76 Year
  Sex: Female
  Weight: 72.2 kg

DRUGS (6)
  1. PREDINISONE [Concomitant]
     Indication: PRODUCT USED FOR UNKNOWN INDICATION
     Route: 065
  2. PANTOPRAZOLE [Concomitant]
     Active Substance: PANTOPRAZOLE
     Indication: PRODUCT USED FOR UNKNOWN INDICATION
     Route: 065
  3. BACTRIM [Concomitant]
     Active Substance: SULFAMETHOXAZOLE\TRIMETHOPRIM
     Indication: PRODUCT USED FOR UNKNOWN INDICATION
     Route: 065
  4. REVLIMID [Suspect]
     Active Substance: LENALIDOMIDE
     Indication: B-CELL LYMPHOMA
     Route: 065
     Dates: start: 2021
  5. ACYCLOVIR. [Concomitant]
     Active Substance: ACYCLOVIR
     Indication: PRODUCT USED FOR UNKNOWN INDICATION
     Route: 041
  6. MONJUVI [Concomitant]
     Active Substance: TAFASITAMAB-CXIX
     Indication: PRODUCT USED FOR UNKNOWN INDICATION
     Route: 041

REACTIONS (2)
  - Dysphagia [Unknown]
  - Diffuse large B-cell lymphoma [Unknown]

NARRATIVE: CASE EVENT DATE: 2021
